FAERS Safety Report 6497525-4 (Version None)
Quarter: 2009Q4

REPORT INFORMATION
  Report Type: 
  Country: None (occurrence: None)
  Receive Date: 20091211
  Receipt Date: 20091030
  Transmission Date: 20100525
  Serious: Yes (Hospitalization, Disabling)
  Sender: FDA-Public Use
  Company Number: DSA_41906_2009

PATIENT
  Sex: Male

DRUGS (3)
  1. CARDIZEM / (CARDIZEM-DILTIAZEM HYDROCHLORIDE) [Suspect]
     Indication: DRUG USE FOR UNKNOWN INDICATION
     Dosage: DF
     Dates: end: 20090801
  2. XALATAN [Suspect]
     Indication: GLAUCOMA
     Dosage: DF ORAL
     Route: 048
     Dates: start: 20080822
  3. ALPHAGAN [Suspect]
     Indication: GLAUCOMA
     Dosage: 1 UNIT BID ORAL
     Route: 048
     Dates: start: 20080926

REACTIONS (7)
  - ABDOMINAL PAIN [None]
  - ASCITES [None]
  - GASTROINTESTINAL DISORDER [None]
  - GLAUCOMA [None]
  - HEREDITARY ANGIOEDEMA [None]
  - SPLENOMEGALY [None]
  - VOMITING [None]
